FAERS Safety Report 7899018-6 (Version None)
Quarter: 2011Q4

REPORT INFORMATION
  Report Type: 
  Country: None (occurrence: None)
  Receive Date: 20111107
  Receipt Date: 20111028
  Transmission Date: 20120403
  Serious: Yes (Hospitalization)
  Sender: FDA-Public Use
  Company Number: SE-B.I. PHARMACEUTICALS,INC./RIDGEFIELD-2011-SW-00447SW

PATIENT
  Age: 43 Year
  Sex: Male
  Weight: 100 kg

DRUGS (2)
  1. PRAMIPEXOLE DIHYCHLLORIDE [Suspect]
     Indication: RESTLESS LEGS SYNDROME
     Dosage: 0.125 MG
     Dates: start: 20100302, end: 20100306
  2. PRAMIPEXOLE DIHYCHLLORIDE [Suspect]
     Dosage: 0.25 MG
     Dates: start: 20100307, end: 20100510

REACTIONS (1)
  - NEUROLOGICAL SYMPTOM [None]
